FAERS Safety Report 8172826-2 (Version None)
Quarter: 2012Q1

REPORT INFORMATION
  Report Type: 
  Country: None (occurrence: None)
  Receive Date: 20120223
  Receipt Date: 20120209
  Transmission Date: 20120608
  Serious: Yes (Death, Other)
  Sender: FDA-Public Use
  Company Number: 2012P1004756

PATIENT
  Age: 65 Year
  Sex: Male

DRUGS (14)
  1. FRAGMIN [Suspect]
     Indication: THROMBOSIS PROPHYLAXIS
     Dosage: 5,000 IU; QD; SC
     Route: 058
     Dates: start: 20111220, end: 20111224
  2. MORPHINE SULFATE [Concomitant]
  3. DIMENHYDRINATE [Concomitant]
  4. ACETAMINOPHEN [Concomitant]
  5. DOCUSATE SODIUM [Concomitant]
  6. PARACETAMOL (ATASOL 30) [Concomitant]
  7. BACITRACIN [Concomitant]
  8. CEFAZOLIN [Concomitant]
  9. CAFFEINE CITRATE [Concomitant]
  10. FERROUS FUMARATE [Concomitant]
  11. MORPHIE SULFATE SR [Concomitant]
  12. WARFARIN SODIUM [Suspect]
     Indication: THROMBOSIS PROPHYLAXIS
     Dosage: 2.5 MG; QD, 5 MG; QD
     Dates: start: 20111220, end: 20111224
  13. WARFARIN SODIUM [Suspect]
     Indication: THROMBOSIS PROPHYLAXIS
     Dosage: 2.5 MG; QD, 5 MG; QD
     Dates: start: 20111220, end: 20111224
  14. CODEINE PHOSPHATE [Concomitant]

REACTIONS (2)
  - PULMONARY EMBOLISM [None]
  - TREATMENT FAILURE [None]
